FAERS Safety Report 5895505-0 (Version None)
Quarter: 2008Q3

REPORT INFORMATION
  Report Type: 
  Country: None (occurrence: None)
  Receive Date: 20080924
  Receipt Date: 20080918
  Transmission Date: 20090109
  Serious: Yes (Hospitalization)
  Sender: FDA-Public Use
  Company Number: US-CELGENEUS-163-20785-08091040

PATIENT
  Sex: Female

DRUGS (2)
  1. THALOMID [Suspect]
     Indication: MULTIPLE MYELOMA
     Route: 048
     Dates: start: 20080422
  2. THALOMID [Suspect]
     Dosage: 200-150MG
     Route: 048
     Dates: start: 20071205, end: 20080101

REACTIONS (1)
  - PELVIC HAEMORRHAGE [None]
